FAERS Safety Report 6279369-1 (Version None)
Quarter: 2009Q3

REPORT INFORMATION
  Report Type: 
  Country: None (occurrence: None)
  Receive Date: 20090723
  Receipt Date: 20090714
  Transmission Date: 20100115
  Serious: Yes (Death, Other)
  Sender: FDA-Public Use
  Company Number: GB-BAXTER-2009BH011483

PATIENT
  Age: 57 Year
  Sex: Male

DRUGS (6)
  1. CYCLOPHOSPHAMIDE [Suspect]
     Indication: WALDENSTROM'S MACROGLOBULINAEMIA
     Route: 048
     Dates: start: 20031101
  2. DEXAMETHASONE [Suspect]
     Indication: WALDENSTROM'S MACROGLOBULINAEMIA
     Route: 048
  3. FLUDARABINE PHOSPHATE [Suspect]
     Indication: WALDENSTROM'S MACROGLOBULINAEMIA
     Route: 048
     Dates: start: 20031101
  4. THALIDOMIDE [Suspect]
     Indication: WALDENSTROM'S MACROGLOBULINAEMIA
     Route: 048
     Dates: start: 20040201
  5. CHLORAMBUCIL [Suspect]
     Indication: WALDENSTROM'S MACROGLOBULINAEMIA
     Route: 065
  6. RITUXIMAB [Suspect]
     Indication: WALDENSTROM'S MACROGLOBULINAEMIA
     Route: 065

REACTIONS (9)
  - BONE MARROW FAILURE [None]
  - CEREBRAL TOXOPLASMOSIS [None]
  - CITROBACTER SEPSIS [None]
  - GANGRENE [None]
  - HYPOGAMMAGLOBULINAEMIA [None]
  - MOLLUSCUM CONTAGIOSUM [None]
  - PANCYTOPENIA [None]
  - PSEUDOMONAL SEPSIS [None]
  - STREPTOCOCCAL INFECTION [None]
